FAERS Safety Report 13610673 (Version 1)
Quarter: 2017Q2

REPORT INFORMATION
  Report Type: Spontaneous
  Country: US (occurrence: US)
  Receive Date: 20170605
  Receipt Date: 20170605
  Transmission Date: 20170830
  Serious: No
  Sender: FDA-Public Use
  Company Number: US-GLENMARK PHARMACEUTICALS-2016GMK023547

PATIENT

DRUGS (3)
  1. MULTIVITAMIN                       /07504101/ [Concomitant]
     Active Substance: VITAMINS
     Indication: SUPPLEMENTATION THERAPY
     Dosage: UNK
     Route: 048
  2. NORETHINDRONE ACETATE. [Suspect]
     Active Substance: NORETHINDRONE ACETATE
     Indication: ENDOMETRIOSIS
     Dosage: 5 MG, QD
     Route: 048
     Dates: start: 20160325
  3. LEUPROLIDE ACETATE. [Suspect]
     Active Substance: LEUPROLIDE ACETATE
     Indication: ENDOMETRIOSIS
     Dosage: 3.75 MG, 1 IN 1 MONTH
     Route: 051
     Dates: start: 20160325

REACTIONS (6)
  - Hypoaesthesia [Unknown]
  - Menstrual disorder [Recovered/Resolved]
  - Abdominal pain [Unknown]
  - Back pain [Unknown]
  - Sciatica [Unknown]
  - Pelvic pain [Unknown]

NARRATIVE: CASE EVENT DATE: 201604
